FAERS Safety Report 9011210 (Version 1)
Quarter: 2013Q1

REPORT INFORMATION
  Report Type: Spontaneous
  Country: US (occurrence: US)
  Receive Date: 20130109
  Receipt Date: 20130109
  Transmission Date: 20140127
  Serious: Yes (Hospitalization)
  Sender: FDA-Public Use
  Company Number: US-PFIZER INC-2013009679

PATIENT
  Age: 57 Year
  Sex: Female
  Weight: 102 kg

DRUGS (4)
  1. NEURONTIN [Suspect]
     Indication: NEUROPATHY PERIPHERAL
     Dosage: UNK
     Dates: start: 201112
  2. METOPROLOL [Concomitant]
     Indication: BLOOD PRESSURE ABNORMAL
     Dosage: 25 MG, 2X/DAY
  3. CARBOPLATIN [Concomitant]
     Indication: OVARIAN CANCER
     Dosage: UNK
  4. GEMZAR [Concomitant]
     Indication: OVARIAN CANCER
     Dosage: UNK

REACTIONS (2)
  - Headache [Unknown]
  - Chest pain [Unknown]
